FAERS Safety Report 8407149-7 (Version None)
Quarter: 2012Q2

REPORT INFORMATION
  Report Type: 
  Country: None (occurrence: None)
  Receive Date: 20120529
  Receipt Date: 20080407
  Transmission Date: 20120825
  Serious: No
  Sender: FDA-Public Use
  Company Number: 000454

PATIENT
  Age: 85 Year
  Sex: Female

DRUGS (8)
  1. ACECOL (TEMOCAPRIL HLYDROCHLORIDE) [Suspect]
  2. MICARDIS [Concomitant]
  3. WYTENS JPN (GUANABENZ ACETATE) [Concomitant]
  4. CARBADOGEN (DOXAZOSIN MESILATE) [Concomitant]
  5. PLETAL [Suspect]
     Indication: CEREBRAL INFARCTION
     Dosage: 100 MG, BID
     Route: 048
     Dates: start: 20080326, end: 20080327
  6. CONIEL (BENIDIPINE HYDROCHLORIDE) [Concomitant]
  7. MEVALOTIN JPN (PRAVASTATIN SODIUM) [Concomitant]
  8. MINITRO (NITROGLYCERIN) [Concomitant]

REACTIONS (4)
  - DIARRHOEA [None]
  - BLOOD PRESSURE DECREASED [None]
  - HYPERSENSITIVITY [None]
  - PHYSICAL EXAMINATION ABNORMAL [None]
